FAERS Safety Report 7638568-4 (Version None)
Quarter: 2011Q3

REPORT INFORMATION
  Report Type: 
  Country: None (occurrence: None)
  Receive Date: 20110720
  Receipt Date: 20110705
  Transmission Date: 20111222
  Serious: Yes (Other)
  Sender: FDA-Public Use
  Company Number: 2011MA008565

PATIENT
  Age: 54 Year
  Sex: Female

DRUGS (6)
  1. LANSOPRAZOLE [Concomitant]
  2. TRAMADOL HYDROCHLORIDE [Suspect]
     Indication: ANALGESIC THERAPY
     Dosage: 50 MG;QID;PO
     Route: 048
     Dates: start: 20110603, end: 20110610
  3. CYCLIZINE [Concomitant]
  4. ZOPICLONE [Concomitant]
  5. DIAZEPAM [Concomitant]
  6. ACETAMINOPHEN AND CODEINE PHOSPHATE [Concomitant]

REACTIONS (1)
  - INCREASED APPETITE [None]
